FAERS Safety Report 10900544 (Version 1)
Quarter: 2015Q1

REPORT INFORMATION
  Report Type: Spontaneous
  Country: US (occurrence: None)
  Receive Date: 20150303
  Receipt Date: 20150303
  Transmission Date: 20150721
  Serious: No
  Sender: FDA-Public Use
  Company Number: None

PATIENT
  Sex: Female

DRUGS (20)
  1. ACYCLOVIR CAP [Concomitant]
  2. LACTULOSE SOLUTION USP, 10 G/15 ML [Concomitant]
     Active Substance: LACTULOSE
  3. SOD BICARB INJ [Concomitant]
  4. HYDRAZLAZINE [Concomitant]
  5. OMEPRAZOLE. [Concomitant]
     Active Substance: OMEPRAZOLE
  6. NOVOLOG INJ [Concomitant]
  7. GLIPIZIDE. [Concomitant]
     Active Substance: GLIPIZIDE
  8. INSULIN SYRG MIS [Concomitant]
  9. ALLOPURINOL TAB [Concomitant]
  10. TRADJENTA [Concomitant]
     Active Substance: LINAGLIPTIN
  11. RESTASIS EMU 0.05% [Concomitant]
  12. TEMAZEPAM CAP [Concomitant]
  13. LEVOTHYROXIN [Concomitant]
     Active Substance: LEVOTHYROXINE
  14. H.P. ACTHAR [Suspect]
     Active Substance: CORTICOTROPIN
     Indication: NEPHROTIC SYNDROME
     Dosage: 40 UNITS TITRATING TO 80 UN EVERY 72 HOURS
     Route: 058
     Dates: start: 20150127
  15. NIFEDIPINE CAP [Concomitant]
  16. RANITIDINE [Concomitant]
     Active Substance: RANITIDINE\RANITIDINE HYDROCHLORIDE
  17. METOCOLOPRAM [Concomitant]
  18. VITAMIN D [Concomitant]
     Active Substance: CHOLECALCIFEROL
  19. CIPROFLOXACIN. [Concomitant]
     Active Substance: CIPROFLOXACIN
  20. METOPROLOL [Concomitant]
     Active Substance: METOPROLOL

REACTIONS (1)
  - Vision blurred [None]
